FAERS Safety Report 5594061-4 (Version None)
Quarter: 2008Q1

REPORT INFORMATION
  Report Type: 
  Country: None (occurrence: None)
  Receive Date: 20080116
  Receipt Date: 20080104
  Transmission Date: 20080703
  Serious: Yes (Hospitalization)
  Sender: FDA-Public Use
  Company Number: CA-PFIZER INC-2006110868

PATIENT
  Sex: Female
  Weight: 60 kg

DRUGS (12)
  1. SUTENT [Suspect]
     Indication: RENAL CELL CARCINOMA
     Route: 048
     Dates: start: 20060328, end: 20060906
  2. TYLENOL [Concomitant]
     Route: 048
     Dates: start: 20060718, end: 20060810
  3. PREDNISONE TAB [Concomitant]
     Route: 048
     Dates: start: 20020101
  4. ZANTAC [Concomitant]
     Route: 048
     Dates: start: 20050901
  5. MEGESTROL [Concomitant]
     Route: 048
     Dates: start: 20051001
  6. EZETROL [Concomitant]
     Route: 048
     Dates: start: 20030101
  7. METOPROLOL [Concomitant]
     Route: 048
     Dates: start: 20060420
  8. SENNA [Concomitant]
     Route: 048
     Dates: start: 20060417
  9. PREVACID [Concomitant]
     Route: 048
     Dates: start: 20060530
  10. MILK OF MAGNESIA [Concomitant]
     Route: 048
     Dates: start: 20060718
  11. GRAVOL TAB [Concomitant]
     Route: 048
     Dates: start: 20060718
  12. DIDROCAL [Concomitant]
     Route: 048

REACTIONS (5)
  - DEHYDRATION [None]
  - HAEMATEMESIS [None]
  - OEDEMA [None]
  - PLEURAL EFFUSION [None]
  - THROMBOCYTOPENIA [None]
